FAERS Safety Report 21559095 (Version 1)
Quarter: 2022Q4

REPORT INFORMATION
  Report Type: Report from Study
  Country: GB (occurrence: US)
  Receive Date: 20221107
  Receipt Date: 20221107
  Transmission Date: 20230112
  Serious: Yes (Other)
  Sender: FDA-Public Use
  Company Number: 2022A363758

PATIENT
  Age: 51 Year
  Sex: Female

DRUGS (1)
  1. DURVALUMAB [Suspect]
     Active Substance: DURVALUMAB
     Indication: Rectal cancer

REACTIONS (1)
  - Pelvic infection [Recovered/Resolved with Sequelae]

NARRATIVE: CASE EVENT DATE: 20221020
